FAERS Safety Report 24270179 (Version 2)
Quarter: 2024Q3

REPORT INFORMATION
  Report Type: Spontaneous
  Country: CN (occurrence: CN)
  Receive Date: 20240830
  Receipt Date: 20240903
  Transmission Date: 20241016
  Serious: Yes (Hospitalization, Disabling, Other)
  Sender: MERCK
  Company Number: CN-009507513-2408CHN009457

PATIENT
  Age: 69 Year
  Sex: Male
  Weight: 45.5 kg

DRUGS (1)
  1. NOXAFIL [Suspect]
     Active Substance: POSACONAZOLE
     Indication: Infection
     Dosage: 300 MG, ONCE A DAY
     Route: 041
     Dates: start: 20240807, end: 20240816

REACTIONS (3)
  - Drug-induced liver injury [Unknown]
  - Renal failure [Unknown]
  - Hepatic function abnormal [Unknown]

NARRATIVE: CASE EVENT DATE: 20240801
